FAERS Safety Report 6965358-8 (Version None)
Quarter: 2010Q3

REPORT INFORMATION
  Report Type: 
  Country: None (occurrence: None)
  Receive Date: 20100903
  Receipt Date: 20100823
  Transmission Date: 20110219
  Serious: No
  Sender: FDA-Public Use
  Company Number: US-JNJFOC-20100509949

PATIENT
  Sex: Female
  Weight: 53.07 kg

DRUGS (2)
  1. DURAGESIC-100 [Suspect]
     Indication: INTERVERTEBRAL DISC DISORDER
     Route: 062
  2. DURAGESIC-100 [Suspect]
     Indication: PAIN
     Route: 062
     Dates: start: 20100401

REACTIONS (4)
  - APPLICATION SITE IRRITATION [None]
  - DERMATITIS CONTACT [None]
  - PRODUCT ADHESION ISSUE [None]
  - WRONG TECHNIQUE IN DRUG USAGE PROCESS [None]
